FAERS Safety Report 25967821 (Version 2)
Quarter: 2025Q4

REPORT INFORMATION
  Report Type: Spontaneous
  Country: US (occurrence: US)
  Receive Date: 20251028
  Receipt Date: 20251111
  Transmission Date: 20260118
  Serious: Yes (Other)
  Sender: CIPLA
  Company Number: US-MLMSERVICE-20251013-PI674045-00102-1

PATIENT

DRUGS (1)
  1. CITALOPRAM [Suspect]
     Active Substance: CITALOPRAM
     Indication: Depression
     Dosage: 30 MILLIGRAM, QD
     Route: 048
     Dates: start: 2003, end: 2025

REACTIONS (5)
  - Deafness [Recovered/Resolved]
  - Migraine [Recovered/Resolved]
  - Withdrawal syndrome [Recovered/Resolved]
  - Nystagmus [Recovered/Resolved]
  - Treatment noncompliance [Unknown]

NARRATIVE: CASE EVENT DATE: 20250101
